FAERS Safety Report 16089093 (Version 1)
Quarter: 2019Q1

REPORT INFORMATION
  Report Type: Report from Study
  Country: None (occurrence: US)
  Receive Date: 20190319
  Receipt Date: 20190319
  Transmission Date: 20190418
  Serious: Yes (Other)
  Sender: FDA-Public Use
  Company Number: US-ABBVIE-19S-163-2704982-00

PATIENT
  Age: 75 Year
  Sex: Male

DRUGS (1)
  1. LUPRON [Suspect]
     Active Substance: LEUPROLIDE ACETATE
     Indication: PRODUCT USED FOR UNKNOWN INDICATION
     Route: 050

REACTIONS (13)
  - Aortic arteriosclerosis [Unknown]
  - Spinal cord compression [Unknown]
  - Anaemia [Unknown]
  - Brachytherapy [Unknown]
  - Sluggishness [Unknown]
  - Pelvic pain [Unknown]
  - Extradural neoplasm [Unknown]
  - Rib fracture [Unknown]
  - Pain [Unknown]
  - Constipation [Unknown]
  - Surgery [Unknown]
  - Prostate cancer metastatic [Unknown]
  - Spinal disorder [Unknown]

NARRATIVE: CASE EVENT DATE: 2015
